FAERS Safety Report 10995399 (Version 1)
Quarter: 2015Q2

REPORT INFORMATION
  Report Type: Spontaneous
  Country: CH (occurrence: CH)
  Receive Date: 20150407
  Receipt Date: 20150407
  Transmission Date: 20150821
  Serious: Yes (Life-Threatening, Hospitalization)
  Sender: FDA-Public Use
  Company Number: CH-PFIZER INC-2015113503

PATIENT
  Age: 45 Year
  Sex: Male
  Weight: 105 kg

DRUGS (6)
  1. COVERAM [Suspect]
     Active Substance: AMLODIPINE\PERINDOPRIL
     Dosage: PERIDNOPRIL 10MG/AMLODIPINE 5MG 1X/DAY
     Route: 048
     Dates: start: 201412, end: 20150315
  2. PANTOPRAZOLE [Concomitant]
     Active Substance: PANTOPRAZOLE SODIUM
     Indication: ABDOMINAL PAIN UPPER
     Dosage: 20 MG, 1X/DAY
     Route: 048
     Dates: start: 201412
  3. DAFALGAN [Concomitant]
     Active Substance: ACETAMINOPHEN
     Indication: PAIN
     Route: 048
  4. PERINDOPRIL [Suspect]
     Active Substance: PERINDOPRIL
     Indication: ESSENTIAL HYPERTENSION
     Dosage: 4 MG, 1X/DAY
     Route: 048
     Dates: start: 20130301, end: 201406
  5. LYRICA [Suspect]
     Active Substance: PREGABALIN
     Indication: NEURALGIA
     Dosage: 150 MG, 3X/DAY
     Route: 048
     Dates: start: 201303, end: 20150315
  6. COVERAM [Suspect]
     Active Substance: AMLODIPINE\PERINDOPRIL
     Indication: ESSENTIAL HYPERTENSION
     Dosage: PERIN.. 5MG/AMLOD 5MG 1X/DAY
     Route: 048
     Dates: start: 201406, end: 201412

REACTIONS (5)
  - Metabolic acidosis [Recovered/Resolved]
  - Respiratory failure [Not Recovered/Not Resolved]
  - Escherichia bacteraemia [Unknown]
  - Acute kidney injury [Recovered/Resolved]
  - Pancreatitis necrotising [Recovering/Resolving]

NARRATIVE: CASE EVENT DATE: 20150315
